FAERS Safety Report 6232121-5 (Version None)
Quarter: 2009Q2

REPORT INFORMATION
  Report Type: 
  Country: None (occurrence: None)
  Receive Date: 20090617
  Receipt Date: 20070906
  Transmission Date: 20091009
  Serious: Yes (Other)
  Sender: FDA-Public Use
  Company Number: US-ASTRAZENECA-2006UW27530

PATIENT
  Age: 647 Month
  Sex: Female
  Weight: 86.2 kg

DRUGS (5)
  1. SEROQUEL [Suspect]
     Indication: BIPOLAR DISORDER
     Route: 048
     Dates: start: 20010101
  2. SEROQUEL [Suspect]
     Dosage: 50 MG TO 300 MG
     Route: 048
     Dates: start: 20010830
  3. ABILIFY [Concomitant]
     Dates: start: 20051001
  4. HALDOL [Concomitant]
     Dates: start: 19830101, end: 19890101
  5. DEPAKOTE ER [Concomitant]
     Dosage: 500 TO 750 MG
     Route: 048
     Dates: start: 19990203

REACTIONS (3)
  - DIABETES MELLITUS [None]
  - LOSS OF CONSCIOUSNESS [None]
  - TYPE 2 DIABETES MELLITUS [None]
